FAERS Safety Report 4530247-5 (Version None)
Quarter: 2004Q4

REPORT INFORMATION
  Report Type: 
  Country: None (occurrence: None)
  Receive Date: 20041215
  Receipt Date: 20041202
  Transmission Date: 20050328
  Serious: Yes (Death)
  Sender: FDA-Public Use
  Company Number: 2004103037

PATIENT
  Age: 46 Year
  Sex: Male
  Weight: 73 kg

DRUGS (9)
  1. DOXORUBICIN HYDROCHLORIDE [Suspect]
     Indication: SYNOVIAL SARCOMA
     Dosage: 55 MG (QD), INTRAVENOUS
     Route: 042
     Dates: start: 20041019, end: 20041020
  2. IFOSFAMIDE [Suspect]
     Indication: SYNOVIAL SARCOMA
     Dosage: 3.7 GRAM (QD), INTRAVENOUS
     Route: 042
     Dates: start: 20041019, end: 20041022
  3. ACARBOSE (ACARBOSE) [Concomitant]
  4. GLIMEPIRIDE [Concomitant]
  5. METFORMIN HCL [Concomitant]
  6. CIMETIDINE HYDROCHLORIDE (CIMETIDINE HYDROCHLORIDE) [Concomitant]
  7. MESNA [Concomitant]
  8. ACETAZOLAMIDE [Concomitant]
  9. SODIUM BICARBONATE IN PLASTIC CONTAINER [Concomitant]

REACTIONS (10)
  - CARDIO-RESPIRATORY ARREST [None]
  - DIAPHRAGMATIC INJURY [None]
  - HEADACHE [None]
  - HYPERGLYCAEMIA [None]
  - INTRA-ABDOMINAL HAEMORRHAGE [None]
  - MARKEDLY REDUCED DIETARY INTAKE [None]
  - METABOLIC ACIDOSIS [None]
  - NAUSEA [None]
  - TINNITUS [None]
  - VOMITING [None]
